FAERS Safety Report 7967273-X (Version None)
Quarter: 2011Q4

REPORT INFORMATION
  Report Type: 
  Country: None (occurrence: None)
  Receive Date: 20111209
  Receipt Date: 20111205
  Transmission Date: 20120403
  Serious: Yes (Death, Hospitalization, Other)
  Sender: FDA-Public Use
  Company Number: US-JNJFOC-20111200923

PATIENT
  Age: 39 Year
  Sex: Male

DRUGS (26)
  1. RITUXIMAB [Suspect]
     Indication: B-CELL LYMPHOMA
     Route: 065
  2. PREDNISONE [Suspect]
     Route: 065
  3. PREDNISONE [Suspect]
     Route: 065
  4. DOXORUBICIN HCL [Suspect]
     Route: 042
  5. DOXORUBICIN HCL [Suspect]
     Route: 042
  6. DOXORUBICIN HCL [Suspect]
     Route: 042
  7. CYCLOPHOSPHAMIDE [Suspect]
     Route: 065
  8. CYCLOPHOSPHAMIDE [Suspect]
     Route: 065
  9. VINCRISTINE [Suspect]
     Route: 065
  10. DOXORUBICIN HCL [Suspect]
     Route: 042
  11. RITUXIMAB [Suspect]
     Route: 065
  12. CYCLOPHOSPHAMIDE [Suspect]
     Route: 065
  13. VINCRISTINE [Suspect]
     Route: 065
  14. VINCRISTINE [Suspect]
     Route: 065
  15. PREDNISONE [Suspect]
     Route: 065
  16. DOXORUBICIN HCL [Suspect]
     Route: 042
  17. CYCLOPHOSPHAMIDE [Suspect]
     Indication: B-CELL LYMPHOMA
     Route: 065
  18. CYCLOPHOSPHAMIDE [Suspect]
     Route: 065
  19. VINCRISTINE [Suspect]
     Route: 065
  20. PREDNISONE [Suspect]
     Indication: B-CELL LYMPHOMA
     Route: 065
  21. CYCLOPHOSPHAMIDE [Suspect]
     Route: 065
  22. PREDNISONE [Suspect]
     Route: 065
  23. DOXORUBICIN HCL [Suspect]
     Indication: B-CELL LYMPHOMA
     Route: 042
  24. VINCRISTINE [Suspect]
     Route: 065
  25. VINCRISTINE [Suspect]
     Indication: B-CELL LYMPHOMA
     Route: 065
  26. PREDNISONE [Suspect]
     Route: 065

REACTIONS (1)
  - PARANEOPLASTIC PEMPHIGUS [None]
